FAERS Safety Report 20331022 (Version 2)
Quarter: 2022Q1

REPORT INFORMATION
  Report Type: Spontaneous
  Country: US (occurrence: US)
  Receive Date: 20220113
  Receipt Date: 20220113
  Transmission Date: 20220423
  Serious: Yes (Other)
  Sender: FDA-Public Use
  Company Number: US-PFIZER INC-202200016565

PATIENT
  Age: 71 Year
  Sex: Female
  Weight: 68.04 kg

DRUGS (2)
  1. PREMARIN [Suspect]
     Active Substance: ESTROGENS, CONJUGATED
     Indication: Premature menopause
     Dosage: 0.625, APPLIED VAGINALLY, AS NEEDED
     Route: 067
  2. PREMARIN [Suspect]
     Active Substance: ESTROGENS, CONJUGATED
     Indication: Premature menopause
     Dosage: UNK UNK, 1X/DAY (0.625, TABLET, BY MOUTH, ONCE A DAY)
     Route: 048
     Dates: end: 20220104

REACTIONS (3)
  - Retinal detachment [Unknown]
  - Memory impairment [Unknown]
  - Off label use [Unknown]
